FAERS Safety Report 20771186 (Version 1)
Quarter: 2022Q2

REPORT INFORMATION
  Report Type: Spontaneous
  Country: US (occurrence: US)
  Receive Date: 20220429
  Receipt Date: 20220429
  Transmission Date: 20220721
  Serious: No
  Sender: FDA-Public Use
  Company Number: US-TEVA-2022-US-2024410

PATIENT
  Age: 48 Year
  Sex: Female
  Weight: 102.06 kg

DRUGS (3)
  1. ESTRADIOL [Suspect]
     Active Substance: ESTRADIOL
     Indication: Menopausal symptoms
     Dosage: 1MG/0.5 MG
     Route: 065
  2. NORETHINDRONE [Suspect]
     Active Substance: NORETHINDRONE
     Route: 065
  3. NORLYDA [Suspect]
     Active Substance: NORETHINDRONE
     Route: 065

REACTIONS (1)
  - Drug ineffective [Unknown]

NARRATIVE: CASE EVENT DATE: 20210101
